FAERS Safety Report 8194181-4 (Version None)
Quarter: 2012Q1

REPORT INFORMATION
  Report Type: 
  Country: None (occurrence: None)
  Receive Date: 20120308
  Receipt Date: 20120227
  Transmission Date: 20120608
  Serious: Yes (Hospitalization)
  Sender: FDA-Public Use
  Company Number: US-ELI_LILLY_AND_COMPANY-US201101006665

PATIENT
  Sex: Female

DRUGS (2)
  1. FORTEO [Suspect]
     Dosage: 20 UG, DAILY (1/D)
     Route: 058
     Dates: start: 20110110
  2. FORTEO [Suspect]
     Dosage: 20 UG, QD
     Route: 058

REACTIONS (7)
  - ARTHRITIS [None]
  - NASOPHARYNGITIS [None]
  - MALAISE [None]
  - VIRAL INFECTION [None]
  - SCIATICA [None]
  - DIZZINESS [None]
  - HEADACHE [None]
